FAERS Safety Report 6751557-7 (Version None)
Quarter: 2010Q2

REPORT INFORMATION
  Report Type: 
  Country: None (occurrence: None)
  Receive Date: 20100602
  Receipt Date: 20100526
  Transmission Date: 20101027
  Serious: No
  Sender: FDA-Public Use
  Company Number: BR-ROCHE-705915

PATIENT
  Sex: Female

DRUGS (2)
  1. ROACUTAN [Suspect]
     Indication: ACNE
     Route: 048
     Dates: start: 20091001, end: 20100101
  2. ROACUTAN [Suspect]
     Route: 048
     Dates: start: 20100101, end: 20100501

REACTIONS (2)
  - NO ADVERSE EVENT [None]
  - PREGNANCY [None]
